FAERS Safety Report 12621253 (Version 1)
Quarter: 2016Q3

REPORT INFORMATION
  Report Type: Spontaneous
  Country: US (occurrence: US)
  Receive Date: 20160804
  Receipt Date: 20160804
  Transmission Date: 20161109
  Serious: No
  Sender: FDA-Public Use
  Company Number: US-BAYER-2016-144407

PATIENT
  Age: 7 Year
  Sex: Male

DRUGS (1)
  1. CHILDREN CLARITIN ALLERGY [Suspect]
     Active Substance: LORATADINE
     Indication: MULTIPLE ALLERGIES
     Dosage: 1.5 DF, ONCE
     Route: 048
     Dates: start: 20160721, end: 20160721

REACTIONS (2)
  - Product use issue [Recovered/Resolved]
  - Expired product administered [None]

NARRATIVE: CASE EVENT DATE: 20160721
